FAERS Safety Report 4587062-6 (Version None)
Quarter: 2005Q1

REPORT INFORMATION
  Report Type: 
  Country: None (occurrence: None)
  Receive Date: 20050218
  Receipt Date: 20050214
  Transmission Date: 20050727
  Serious: Yes (Hospitalization)
  Sender: FDA-Public Use
  Company Number: PHRM2005FR00807

PATIENT
  Age: 52 Year
  Sex: Female
  Weight: 130 kg

DRUGS (11)
  1. HEPARIN [Concomitant]
     Indication: PROPHYLAXIS
     Dates: end: 20040612
  2. ESTRADERM [Suspect]
     Dosage: 1 DF, QW2
     Route: 062
  3. LIPANOR [Concomitant]
     Route: 048
  4. DIFRAREL [Concomitant]
     Route: 048
  5. CORGARD [Concomitant]
     Route: 048
  6. ZELITREX [Concomitant]
     Route: 048
  7. ALDACTONE [Suspect]
     Dosage: 50 MG, BID
     Route: 048
     Dates: end: 20040622
  8. TRIZIVIR [Suspect]
     Dosage: 1 DF, BID
     Route: 048
     Dates: start: 20020207
  9. LEVOTHYROX [Suspect]
     Route: 048
  10. LUTENYL [Suspect]
     Route: 048
  11. HYZAAR [Suspect]
     Dosage: 1 DF, BID
     Route: 048
     Dates: end: 20040616

REACTIONS (4)
  - DEEP VEIN THROMBOSIS [None]
  - LIMB IMMOBILISATION [None]
  - LOWER LIMB FRACTURE [None]
  - PULMONARY EMBOLISM [None]
